FAERS Safety Report 9667717 (Version 2)
Quarter: 2014Q1

REPORT INFORMATION
  Report Type: Spontaneous
  Country: FR (occurrence: FR)
  Receive Date: 20131104
  Receipt Date: 20140113
  Transmission Date: 20141002
  Serious: Yes (Other)
  Sender: FDA-Public Use
  Company Number: FR-JNJFOC-20131018213

PATIENT
  Age: 60 Year
  Sex: Male
  Weight: 88 kg

DRUGS (8)
  1. SIMPONI [Suspect]
     Indication: PSORIATIC ARTHROPATHY
     Route: 058
     Dates: start: 201301, end: 201308
  2. SIMPONI [Suspect]
     Indication: PSORIATIC ARTHROPATHY
     Route: 058
     Dates: start: 201304, end: 201309
  3. SIMPONI [Suspect]
     Indication: RHEUMATOID ARTHRITIS
     Route: 058
     Dates: start: 201304, end: 201309
  4. SIMPONI [Suspect]
     Indication: RHEUMATOID ARTHRITIS
     Route: 058
     Dates: start: 201301, end: 201308
  5. METOJECT [Concomitant]
     Route: 065
  6. LEVOTHYROX [Concomitant]
     Dosage: DOSAGE: 175 (UNITS UNSPECIFIED)
     Route: 065
     Dates: start: 2009
  7. RABEPRAZOLE [Concomitant]
     Route: 065
     Dates: start: 2011
  8. SPIRIVA [Concomitant]
     Dosage: ^2-0-0^
     Route: 065
     Dates: start: 2012

REACTIONS (3)
  - Pulmonary mycosis [Recovering/Resolving]
  - Mucosal inflammation [Unknown]
  - Psoriasis [Not Recovered/Not Resolved]
